FAERS Safety Report 10024590 (Version 1)
Quarter: 2014Q1

REPORT INFORMATION
  Report Type: Spontaneous
  Country: US (occurrence: None)
  Receive Date: 20140319
  Receipt Date: 20140319
  Transmission Date: 20141002
  Serious: Yes (Other)
  Sender: FDA-Public Use
  Company Number: None

PATIENT
  Age: 46 Year
  Sex: Female

DRUGS (1)
  1. BRINTELLIX [Suspect]
     Dosage: 10 MG TABLET QHS BY MOUTH
     Route: 048
     Dates: start: 20140313, end: 20140317

REACTIONS (1)
  - Vomiting [None]
